FAERS Safety Report 11706545 (Version 1)
Quarter: 2015Q4

REPORT INFORMATION
  Report Type: Report from Study
  Country: US (occurrence: US)
  Receive Date: 20151106
  Receipt Date: 20151106
  Transmission Date: 20160304
  Serious: No
  Sender: FDA-Public Use
  Company Number: US-CELGENEUS-USA-2015095605

PATIENT
  Age: 56 Year
  Sex: Male

DRUGS (1)
  1. REVLIMID [Suspect]
     Active Substance: LENALIDOMIDE
     Indication: PRODUCT USED FOR UNKNOWN INDICATION
     Route: 048

REACTIONS (6)
  - Monoclonal immunoglobulin present [Unknown]
  - Fatigue [Unknown]
  - Blood count abnormal [Unknown]
  - Muscle spasms [Unknown]
  - Arthropathy [Unknown]
  - Neuropathy peripheral [Unknown]
